FAERS Safety Report 6568129-X (Version None)
Quarter: 2010Q1

REPORT INFORMATION
  Report Type: 
  Country: None (occurrence: None)
  Receive Date: 20100128
  Receipt Date: 20100122
  Transmission Date: 20100710
  Serious: Yes (Death)
  Sender: FDA-Public Use
  Company Number: TPG2010A00068

PATIENT
  Age: 79 Year
  Sex: Male

DRUGS (6)
  1. ACTOS [Suspect]
     Indication: DIABETES MELLITUS
     Dosage: PER ORAL, YEARS AGO
     Route: 048
  2. GLUCOPHAGE [Concomitant]
  3. SELIPRAN (PRAVASTATIN SODIUM) [Concomitant]
  4. ASPIRIN [Concomitant]
  5. BISOPROLOL FUMARATE [Concomitant]
  6. DIOVAN HCT [Concomitant]

REACTIONS (1)
  - CARDIAC FAILURE ACUTE [None]
